FAERS Safety Report 5523290-0 (Version None)
Quarter: 2007Q4

REPORT INFORMATION
  Report Type: 
  Country: None (occurrence: None)
  Receive Date: 20071121
  Receipt Date: 20071114
  Transmission Date: 20080405
  Serious: Yes (Death, Other)
  Sender: FDA-Public Use
  Company Number: ES-AVENTIS-200720555GDDC

PATIENT
  Age: 86 Year
  Sex: Female

DRUGS (6)
  1. ARAVA [Suspect]
     Indication: RHEUMATOID ARTHRITIS
     Route: 048
     Dates: start: 20070201, end: 20070624
  2. METHOTREXATE [Suspect]
     Indication: RHEUMATOID ARTHRITIS
     Route: 048
     Dates: start: 20031001, end: 20070624
  3. ACTONEL [Concomitant]
     Route: 048
  4. DACORTIN [Concomitant]
     Dosage: DOSE: UNK
     Route: 048
     Dates: start: 20030101, end: 20070624
  5. LEDERFOLIN                         /00566702/ [Concomitant]
     Route: 048
  6. OMEPRAZOLE [Concomitant]
     Route: 048

REACTIONS (2)
  - DRUG INTERACTION [None]
  - PANCYTOPENIA [None]
